FAERS Safety Report 10503746 (Version 3)
Quarter: 2014Q4

REPORT INFORMATION
  Report Type: Spontaneous
  Country: US (occurrence: None)
  Receive Date: 20141006
  Receipt Date: 20141020
  Transmission Date: 20150528
  Serious: Yes (Other)
  Sender: FDA-Public Use
  Company Number: 2014-US-012267

PATIENT
  Sex: Male
  Weight: 108.8 kg

DRUGS (4)
  1. XYREM [Suspect]
     Active Substance: SODIUM OXYBATE
     Indication: NARCOLEPSY
     Dosage: DOSE ADJUSTMENTS, ORAL
     Route: 048
     Dates: start: 201110, end: 2011
  2. VITAMIN E [Concomitant]
     Active Substance: .ALPHA.-TOCOPHEROL
  3. ADDERALL (AMDETAMINE, AMFETAMINE SULFATE, DEXAMETHASONE SACCHARATE, DEXAMFETAMINE SULFATE) [Concomitant]
  4. XYREM [Suspect]
     Active Substance: SODIUM OXYBATE
     Indication: SOMNOLENCE
     Dosage: DOSE ADJUSTMENTS, ORAL
     Route: 048
     Dates: start: 201110, end: 2011

REACTIONS (1)
  - Angina pectoris [None]

NARRATIVE: CASE EVENT DATE: 2014
